FAERS Safety Report 5501012-7 (Version None)
Quarter: 2007Q4

REPORT INFORMATION
  Report Type: 
  Country: None (occurrence: None)
  Receive Date: 20071029
  Receipt Date: 20071019
  Transmission Date: 20080405
  Serious: Yes (Disabling, Other)
  Sender: FDA-Public Use
  Company Number: PHBS2007TR17468

PATIENT

DRUGS (1)
  1. VOLTAREN [Suspect]
     Route: 065

REACTIONS (1)
  - SCIATIC NERVE PALSY [None]
